FAERS Safety Report 16854327 (Version 1)
Quarter: 2019Q3

REPORT INFORMATION
  Report Type: Spontaneous
  Country: US (occurrence: US)
  Receive Date: 20190805
  Receipt Date: 20190805
  Transmission Date: 20191005
  Serious: No
  Sender: FDA-Public Use
  Company Number: None

PATIENT
  Age: 49 Year
  Sex: Female
  Weight: 80.29 kg

DRUGS (1)
  1. SUMATRIPTAN (GENERIC IMITREX) [Suspect]
     Active Substance: SUMATRIPTAN
     Indication: MIGRAINE
     Route: 048

REACTIONS (5)
  - Fatigue [None]
  - Headache [None]
  - Nausea [None]
  - Product substitution issue [None]
  - Vomiting [None]
